FAERS Safety Report 6210955-0 (Version None)
Quarter: 2009Q2

REPORT INFORMATION
  Report Type: 
  Country: None (occurrence: None)
  Receive Date: 20090528
  Receipt Date: 20090528
  Transmission Date: 20091009
  Serious: Yes (Hospitalization, Disabling)
  Sender: FDA-Public Use
  Company Number: None

PATIENT
  Age: 25 Year
  Sex: Female
  Weight: 49.8957 kg

DRUGS (1)
  1. MIRENA [Suspect]
     Indication: CONTRACEPTION
     Dates: start: 20030930, end: 20090526

REACTIONS (7)
  - COMPLICATION OF DEVICE INSERTION [None]
  - HAEMORRHAGE [None]
  - IUD MIGRATION [None]
  - PAIN [None]
  - SCAR [None]
  - UTERINE DISORDER [None]
  - UTERINE RUPTURE [None]
